FAERS Safety Report 8955519 (Version 1)
Quarter: 2012Q4

REPORT INFORMATION
  Report Type: 
  Country: US (occurrence: US)
  Receive Date: 20121207
  Receipt Date: 20121207
  Transmission Date: 20130627
  Serious: Yes (Other)
  Sender: FDA-Public Use
  Company Number: US-PFIZER INC-2012304888

PATIENT
  Age: 76 Year
  Sex: Female
  Weight: 53.97 kg

DRUGS (1)
  1. TOVIAZ [Suspect]
     Indication: BLADDER DISORDER
     Dosage: UNK
     Dates: start: 2012, end: 201211

REACTIONS (3)
  - Vision blurred [Unknown]
  - Paraesthesia [Unknown]
  - Constipation [Unknown]
